FAERS Safety Report 5027384-8 (Version None)
Quarter: 2006Q2

REPORT INFORMATION
  Report Type: 
  Country: None (occurrence: None)
  Receive Date: 20060501
  Receipt Date: 20060228
  Transmission Date: 20061013
  Serious: Yes (Hospitalization)
  Sender: FDA-Public Use
  Company Number: 200611135BWH

PATIENT
  Age: 83 Year
  Sex: Male

DRUGS (5)
  1. NEXAVAR [Suspect]
     Indication: RENAL CELL CARCINOMA STAGE UNSPECIFIED
     Dosage: SEE IMAGE, ORAL
     Route: 048
     Dates: start: 20060127, end: 20060208
  2. NEXAVAR [Suspect]
     Indication: RENAL CELL CARCINOMA STAGE UNSPECIFIED
     Dosage: SEE IMAGE, ORAL
     Route: 048
     Dates: start: 20060214
  3. FLOMAX [Concomitant]
  4. DILACOR XR [Concomitant]
  5. LIPITOR [Concomitant]

REACTIONS (2)
  - DEHYDRATION [None]
  - DIARRHOEA [None]
